FAERS Safety Report 6106177-4 (Version None)
Quarter: 2009Q1

REPORT INFORMATION
  Report Type: 
  Country: None (occurrence: None)
  Receive Date: 20090306
  Receipt Date: 20090224
  Transmission Date: 20090719
  Serious: No
  Sender: FDA-Public Use
  Company Number: US-ELI_LILLY_AND_COMPANY-US200902006990

PATIENT
  Sex: Female

DRUGS (2)
  1. CYMBALTA [Suspect]
     Indication: DEPRESSION
     Dosage: 30 MG, EACH MORNING
     Route: 048
     Dates: start: 20090217, end: 20090201
  2. CYMBALTA [Suspect]
     Dosage: 60 MG, EACH MORNING
     Dates: start: 20090201

REACTIONS (4)
  - ANXIETY [None]
  - CHROMATURIA [None]
  - DRY MOUTH [None]
  - MOOD ALTERED [None]
